FAERS Safety Report 24693224 (Version 1)
Quarter: 2024Q4

REPORT INFORMATION
  Report Type: Spontaneous
  Country: ES (occurrence: ES)
  Receive Date: 20241203
  Receipt Date: 20241203
  Transmission Date: 20250115
  Serious: Yes (Other)
  Sender: BOEHRINGER INGELHEIM
  Company Number: None

PATIENT
  Sex: Female

DRUGS (2)
  1. DABIGATRAN ETEXILATE MESYLATE [Suspect]
     Active Substance: DABIGATRAN ETEXILATE MESYLATE
     Indication: Deep vein thrombosis
     Route: 048
     Dates: start: 20241009
  2. HEPARIN SODIUM [Suspect]
     Active Substance: HEPARIN SODIUM
     Indication: Deep vein thrombosis
     Route: 058
     Dates: start: 20241009

REACTIONS (4)
  - Haematoma [Unknown]
  - Coagulopathy [Unknown]
  - Product administration error [Unknown]
  - Drug interaction [Unknown]

NARRATIVE: CASE EVENT DATE: 20241025
